FAERS Safety Report 5220630-7 (Version None)
Quarter: 2007Q1

REPORT INFORMATION
  Report Type: 
  Country: None (occurrence: None)
  Receive Date: 20070126
  Receipt Date: 20070119
  Transmission Date: 20070707
  Serious: Yes (Other)
  Sender: FDA-Public Use
  Company Number: NL-BRISTOL-MYERS SQUIBB COMPANY-13655345

PATIENT
  Age: 11 Year
  Sex: Male

DRUGS (1)
  1. UROMITEXAN TABS [Suspect]
     Indication: METAL POISONING

REACTIONS (1)
  - STEVENS-JOHNSON SYNDROME [None]
